FAERS Safety Report 6178641-3 (Version None)
Quarter: 2009Q2

REPORT INFORMATION
  Report Type: 
  Country: None (occurrence: None)
  Receive Date: 20090430
  Receipt Date: 20090421
  Transmission Date: 20091009
  Serious: Yes (Other)
  Sender: FDA-Public Use
  Company Number: 256271

PATIENT
  Age: 70 Year
  Sex: Female

DRUGS (2)
  1. DOBUTAMINE HCL [Suspect]
     Indication: CARDIOGENIC SHOCK
     Dosage: INFUSION
  2. (PARENTERAL) [Concomitant]

REACTIONS (6)
  - ACUTE CORONARY SYNDROME [None]
  - ACUTE PULMONARY OEDEMA [None]
  - CARDIOGENIC SHOCK [None]
  - CONDITION AGGRAVATED [None]
  - HYPERKINETIC HEART SYNDROME [None]
  - MITRAL VALVE INCOMPETENCE [None]
